FAERS Safety Report 12964864 (Version 2)
Quarter: 2016Q4

REPORT INFORMATION
  Report Type: Spontaneous
  Country: US (occurrence: US)
  Receive Date: 20161122
  Receipt Date: 20161223
  Transmission Date: 20170207
  Serious: No
  Sender: FDA-Public Use
  Company Number: US-PFIZER INC-2016542185

PATIENT
  Age: 13 Year
  Sex: Female
  Weight: 53 kg

DRUGS (4)
  1. SOLU-MEDROL [Suspect]
     Active Substance: METHYLPREDNISOLONE SODIUM SUCCINATE
     Indication: WHEEZING
     Dosage: 40 MG, SINGLE
     Route: 030
     Dates: start: 20161025, end: 20161025
  2. VENTOLIN [Concomitant]
     Active Substance: ALBUTEROL SULFATE
     Indication: WHEEZING
     Dosage: 108 UG, AS NEEDED (108 MCG/ACT 2 PUFFS OF 4 HOURS PRN)
     Route: 055
     Dates: start: 20161022
  3. ALBUTEROL. [Concomitant]
     Active Substance: ALBUTEROL
     Indication: WHEEZING
     Dosage: 1.25/3ML MG, EVERY 4 HRS
     Dates: start: 20161024
  4. FLOVENT [Concomitant]
     Active Substance: FLUTICASONE PROPIONATE
     Indication: WHEEZING
     Dosage: 44 UG, DAILY (44UG/ACT 2 PUFFS DAILY)
     Route: 055
     Dates: start: 20161022

REACTIONS (1)
  - Pain [Recovered/Resolved]

NARRATIVE: CASE EVENT DATE: 20161025
